FAERS Safety Report 4269498-6 (Version None)
Quarter: 2004Q1

REPORT INFORMATION
  Report Type: 
  Country: None (occurrence: None)
  Receive Date: 20040112
  Receipt Date: 20040105
  Transmission Date: 20041129
  Serious: Yes (Life-Threatening)
  Sender: FDA-Public Use
  Company Number: 200410077GDDC

PATIENT
  Age: 30 Year
  Sex: Female

DRUGS (5)
  1. METRONIDAZOLE [Suspect]
     Indication: INFECTION
     Dosage: 500 MG ONCE IV
     Route: 042
     Dates: start: 20031217, end: 20031218
  2. CEFUROXIME [Concomitant]
  3. ACETAMINOPHEN [Concomitant]
  4. DIHYDROCODEINE [Concomitant]
  5. IBUPROFEN [Concomitant]

REACTIONS (4)
  - CHILLS [None]
  - CYANOSIS [None]
  - MEDICATION ERROR [None]
  - PALLOR [None]
